FAERS Safety Report 16840988 (Version 1)
Quarter: 2019Q3

REPORT INFORMATION
  Report Type: Spontaneous
  Country: US (occurrence: US)
  Receive Date: 20190923
  Receipt Date: 20190923
  Transmission Date: 20191005
  Serious: Yes (Other)
  Sender: FDA-Public Use
  Company Number: US-CURRAX PHARMACEUTICALS LLC-US-2019PER000111

PATIENT
  Sex: Female

DRUGS (1)
  1. SF 5000 PLUS [Suspect]
     Active Substance: SODIUM FLUORIDE
     Indication: DENTAL CARIES
     Dosage: APPLY A THIN RIBBON, ONCE DAILY SELF-APPLIED TOPICAL USE
     Route: 048

REACTIONS (2)
  - Pulmonary congestion [Not Recovered/Not Resolved]
  - Muscle spasms [Not Recovered/Not Resolved]

NARRATIVE: CASE EVENT DATE: 201907
